FAERS Safety Report 15563014 (Version 1)
Quarter: 2018Q4

REPORT INFORMATION
  Report Type: Spontaneous
  Country: FR (occurrence: FR)
  Receive Date: 20181029
  Receipt Date: 20181029
  Transmission Date: 20190205
  Serious: Yes (Hospitalization)
  Sender: FDA-Public Use
  Company Number: FR-SHIRE-FR201841623

PATIENT

DRUGS (2)
  1. XAGRID [Suspect]
     Active Substance: ANAGRELIDE HYDROCHLORIDE
     Indication: MYELODYSPLASTIC SYNDROME
     Dosage: 2 MG, 1X/DAY:QD
     Route: 048
     Dates: start: 2015
  2. KARDEGIC [Suspect]
     Active Substance: ASPIRIN DL-LYSINE
     Indication: MYELODYSPLASTIC SYNDROME
     Dosage: 75 MG, 1X/DAY:QD
     Route: 048
     Dates: start: 2010

REACTIONS (1)
  - Impaired healing [Not Recovered/Not Resolved]

NARRATIVE: CASE EVENT DATE: 20180529
